FAERS Safety Report 23220283 (Version 1)
Quarter: 2023Q4

REPORT INFORMATION
  Report Type: Other
  Country: DE (occurrence: None)
  Receive Date: 20231123
  Receipt Date: 20231123
  Transmission Date: 20240110
  Serious: Yes (Death, Other)
  Sender: FDA-Public Use
  Company Number: DE-ROCHE-2973456

PATIENT

DRUGS (4)
  1. OBINUTUZUMAB [Suspect]
     Active Substance: OBINUTUZUMAB
     Indication: Chronic lymphocytic leukaemia
     Dosage: 6 CYCLES
     Route: 042
  2. OBINUTUZUMAB [Suspect]
     Active Substance: OBINUTUZUMAB
     Indication: Lymphocytic leukaemia
  3. CHLORAMBUCIL [Suspect]
     Active Substance: CHLORAMBUCIL
     Indication: Chronic lymphocytic leukaemia
     Dosage: ON DAYS 1 AND 15 OF EACH CYCLE
     Route: 048
  4. CHLORAMBUCIL [Suspect]
     Active Substance: CHLORAMBUCIL
     Indication: Lymphocytic leukaemia

REACTIONS (35)
  - Pneumonia [Fatal]
  - Cholestasis [Fatal]
  - Hypertension [Unknown]
  - Neutropenia [Unknown]
  - Thrombocytopenia [Unknown]
  - Diarrhoea [Unknown]
  - Myelodysplastic syndrome [Unknown]
  - Myeloproliferative neoplasm [Unknown]
  - Second primary malignancy [Unknown]
  - Skin cancer [Unknown]
  - Papillary thyroid cancer [Unknown]
  - Prostate cancer [Unknown]
  - Prostate cancer metastatic [Unknown]
  - Basal cell carcinoma [Unknown]
  - Squamous cell carcinoma of skin [Unknown]
  - Squamous cell carcinoma [Unknown]
  - Malignant melanoma [Unknown]
  - Malignant melanoma [Unknown]
  - Neoplasm malignant [Unknown]
  - Adenocarcinoma gastric [Unknown]
  - Lung adenocarcinoma [Unknown]
  - Metastases to peritoneum [Unknown]
  - Hyperuricaemia [Unknown]
  - Anaemia [Unknown]
  - Alanine aminotransferase increased [Unknown]
  - Bronchitis [Unknown]
  - Febrile neutropenia [Unknown]
  - Syncope [Unknown]
  - Urinary tract infection [Unknown]
  - Aspartate aminotransferase increased [Unknown]
  - Herpes zoster [Unknown]
  - Infusion related reaction [Unknown]
  - Leukopenia [Unknown]
  - Lymphopenia [Unknown]
  - Tumour lysis syndrome [Unknown]
